FAERS Safety Report 7113540-1 (Version None)
Quarter: 2010Q4

REPORT INFORMATION
  Report Type: 
  Country: None (occurrence: None)
  Receive Date: 20101119
  Receipt Date: 20101110
  Transmission Date: 20110411
  Serious: Yes (Other)
  Sender: FDA-Public Use
  Company Number: US-PFIZER INC-2010148256

PATIENT
  Sex: Male

DRUGS (3)
  1. GEODON [Suspect]
     Dosage: 160 MG/DAY
  2. GEODON [Suspect]
     Dosage: 100 MG/DAY
  3. LITHIUM [Concomitant]
     Dosage: UNK

REACTIONS (1)
  - AKATHISIA [None]
